FAERS Safety Report 4763234-2 (Version None)
Quarter: 2005Q3

REPORT INFORMATION
  Report Type: 
  Country: None (occurrence: None)
  Receive Date: 20050902
  Receipt Date: 20050819
  Transmission Date: 20060218
  Serious: Yes (Life-Threatening, Hospitalization)
  Sender: FDA-Public Use
  Company Number: 12187

PATIENT
  Age: 13 Year
  Sex: Male

DRUGS (16)
  1. METHOTREXATE [Suspect]
     Indication: ACUTE LYMPHOCYTIC LEUKAEMIA
     Dosage: 500 MG/M2 IV
     Route: 042
     Dates: start: 20050704, end: 20050704
  2. METHOTREXATE [Suspect]
     Indication: ACUTE LYMPHOCYTIC LEUKAEMIA
     Dosage: 4500 MG/M2 IV
     Route: 042
     Dates: start: 20050704, end: 20050704
  3. METHOTREXATE [Suspect]
     Indication: ACUTE LYMPHOCYTIC LEUKAEMIA
     Dosage: 15 MG DAILY IT
     Dates: start: 20050704, end: 20050704
  4. LORAZEPAM [Suspect]
     Indication: CONVULSION
     Dosage: 2 MG ONCE IV
     Route: 042
     Dates: start: 20050711, end: 20050711
  5. LAXIS [Suspect]
  6. OMEPRAZOLE [Suspect]
     Dosage: 40 MG ONCE IV
     Route: 042
  7. HYDROCORTISONE [Concomitant]
  8. CYTARABINE [Concomitant]
  9. LEUCOVORIN [Concomitant]
  10. DEXAMETHASONE [Concomitant]
  11. GLEEVEC [Concomitant]
  12. ZOFRAN [Concomitant]
  13. PASPORTIN [Concomitant]
  14. AKINETON [Concomitant]
  15. GRANOCYTE [Concomitant]
  16. STILNOX [Concomitant]

REACTIONS (8)
  - CONVULSION [None]
  - DIALYSIS [None]
  - DRUG INTERACTION [None]
  - DRUG TOXICITY [None]
  - ENCEPHALOPATHY [None]
  - NEUROTOXICITY [None]
  - RENAL FAILURE ACUTE [None]
  - RESPIRATORY ARREST [None]
